FAERS Safety Report 8020373-0 (Version None)
Quarter: 2012Q1

REPORT INFORMATION
  Report Type: 
  Country: None (occurrence: None)
  Receive Date: 20120103
  Receipt Date: 20111222
  Transmission Date: 20120608
  Serious: Yes (Other)
  Sender: FDA-Public Use
  Company Number: US-ELI_LILLY_AND_COMPANY-US201201000170

PATIENT
  Sex: Female

DRUGS (2)
  1. OXYGEN [Concomitant]
     Dosage: UNK, OTHER
  2. FORTEO [Suspect]
     Indication: OSTEOPOROSIS
     Dosage: 20 UG, QD
     Route: 065

REACTIONS (3)
  - LUNG DISORDER [None]
  - MOVEMENT DISORDER [None]
  - OXYGEN SATURATION DECREASED [None]
